FAERS Safety Report 10486889 (Version 1)
Quarter: 2014Q4

REPORT INFORMATION
  Report Type: Spontaneous
  Country: US (occurrence: US)
  Receive Date: 20141001
  Receipt Date: 20141001
  Transmission Date: 20150528
  Serious: No
  Sender: FDA-Public Use
  Company Number: US-BAYER-2014-142587

PATIENT
  Age: 87 Year
  Sex: Male

DRUGS (1)
  1. FINACEA [Suspect]
     Active Substance: AZELAIC ACID
     Indication: ROSACEA
     Dosage: 15% GEL,APPROXIMATELY 30 DAYS AGO, BID
     Route: 061

REACTIONS (4)
  - Product use issue [None]
  - Medication residue present [None]
  - Skin haemorrhage [None]
  - Scab [None]
